FAERS Safety Report 7010814-X (Version None)
Quarter: 2010Q3

REPORT INFORMATION
  Report Type: 
  Country: None (occurrence: None)
  Receive Date: 20100923
  Receipt Date: 20100923
  Transmission Date: 20110219
  Serious: Yes (Life-Threatening, Hospitalization)
  Sender: FDA-Public Use
  Company Number: None

PATIENT
  Age: 43 Year
  Sex: Female
  Weight: 86.1834 kg

DRUGS (1)
  1. ORTHO TRI-CYCLEN LO [Suspect]
     Indication: ACNE
     Dosage: 1 PILL DAILY PO 3-4 MONTHS
     Route: 048

REACTIONS (8)
  - DEEP VEIN THROMBOSIS [None]
  - DIZZINESS [None]
  - HEADACHE [None]
  - HYPERCOAGULATION [None]
  - IMPAIRED WORK ABILITY [None]
  - LOSS OF CONSCIOUSNESS [None]
  - OVERWEIGHT [None]
  - PULMONARY EMBOLISM [None]
